FAERS Safety Report 5583899-5 (Version None)
Quarter: 2008Q1

REPORT INFORMATION
  Report Type: 
  Country: None (occurrence: None)
  Receive Date: 20080102
  Receipt Date: 20080102
  Transmission Date: 20080703
  Serious: Yes (Life-Threatening, Hospitalization, Disabling)
  Sender: FDA-Public Use
  Company Number: None

PATIENT
  Age: 49 Year
  Sex: Male
  Weight: 86.1834 kg

DRUGS (2)
  1. GABAPENTIN [Suspect]
     Indication: BACK PAIN
     Dosage: 600 MG 3 X DAILY PO
     Route: 048
     Dates: start: 20070917, end: 20071231
  2. GABAPENTIN [Suspect]
     Indication: INTERVERTEBRAL DISC PROTRUSION
     Dosage: 600 MG 3 X DAILY PO
     Route: 048
     Dates: start: 20070917, end: 20071231

REACTIONS (15)
  - ABNORMAL BEHAVIOUR [None]
  - ALCOHOLIC [None]
  - ASTHENIA [None]
  - DEPRESSION [None]
  - DRUG DEPENDENCE [None]
  - FAMILY STRESS [None]
  - IMPAIRED WORK ABILITY [None]
  - LOSS OF EMPLOYMENT [None]
  - MENTAL DISORDER [None]
  - MOTOR DYSFUNCTION [None]
  - ROAD TRAFFIC ACCIDENT [None]
  - SUDDEN ONSET OF SLEEP [None]
  - SUICIDAL IDEATION [None]
  - SUICIDE ATTEMPT [None]
  - WRIST FRACTURE [None]
